FAERS Safety Report 11964769 (Version 1)
Quarter: 2016Q1

REPORT INFORMATION
  Report Type: Spontaneous
  Country: US (occurrence: None)
  Receive Date: 20160125
  Receipt Date: 20160125
  Transmission Date: 20160526
  Serious: Yes (Disabling)
  Sender: FDA-Public Use
  Company Number: None

PATIENT
  Age: 14 Year
  Sex: Male
  Weight: 61.69 kg

DRUGS (5)
  1. MINOCYCLINE [Concomitant]
     Active Substance: MINOCYCLINE\MINOCYCLINE HYDROCHLORIDE
  2. DIETARY SUPPLEMENT [Concomitant]
     Active Substance: DIETARY SUPPLEMENT
  3. ABSORICA [Suspect]
     Active Substance: ISOTRETINOIN
     Indication: ACNE CONGLOBATA
     Dosage: 20 MG/DAY SO I CAPSULE/DAY ONCE DAILY TAKEN BY MOUTH
     Route: 048
     Dates: start: 20160122, end: 20160122
  4. IBUPROFEN. [Concomitant]
     Active Substance: IBUPROFEN
  5. DAPSONE. [Concomitant]
     Active Substance: DAPSONE

REACTIONS (5)
  - Crying [None]
  - Back pain [None]
  - Musculoskeletal pain [None]
  - Asthenia [None]
  - Immobile [None]
